FAERS Safety Report 8664537 (Version 2)
Quarter: 2012Q4

REPORT INFORMATION
  Report Type: 
  Country: CA (occurrence: CA)
  Receive Date: 20120713
  Receipt Date: 20121214
  Transmission Date: 20130627
  Serious: Yes (Other)
  Sender: FDA-Public Use
  Company Number: CA-SANOFI-AVENTIS-2012SA048253

PATIENT
  Age: 63 Year
  Sex: Female
  Weight: 96 kg

DRUGS (5)
  1. TAXOTERE [Suspect]
     Indication: BREAST CANCER
     Route: 042
     Dates: start: 20100929, end: 20101110
  2. ACETAMINOPHEN [Concomitant]
     Indication: BODY TEMPERATURE
  3. ANASTROZOLE [Concomitant]
     Dosage: strength: 1 mg
     Route: 048
  4. DIPHENHYDRAMINE [Concomitant]
     Indication: NAUSEA
  5. FLUCONAZOLE [Concomitant]
     Indication: ORAL THRUSH
     Dosage: for 10 days
     Route: 048

REACTIONS (3)
  - Lung infiltration [Unknown]
  - Computerised tomogram abnormal [Unknown]
  - Dyspnoea [Unknown]
